FAERS Safety Report 23667387 (Version 1)
Quarter: 2024Q1

REPORT INFORMATION
  Report Type: Spontaneous
  Country: US (occurrence: US)
  Receive Date: 20240325
  Receipt Date: 20240325
  Transmission Date: 20240410
  Serious: No
  Sender: FDA-Public Use
  Company Number: US-AUROBINDO-AUR-APL-2023-034223

PATIENT
  Sex: Female

DRUGS (1)
  1. SERTRALINE HYDROCHLORIDE [Suspect]
     Active Substance: SERTRALINE HYDROCHLORIDE
     Indication: Depression
     Dosage: UNK, DOSE WAS TO TITRATE UP FROM 1/2 A TABLET, TO ONE TABLET, TO 1 AND 1/2 TABLETS
     Route: 048
     Dates: start: 20230415

REACTIONS (4)
  - Abdominal discomfort [Unknown]
  - Condition aggravated [Unknown]
  - Malaise [Unknown]
  - Nervousness [Unknown]
